FAERS Safety Report 20775860 (Version 1)
Quarter: 2022Q2

REPORT INFORMATION
  Report Type: Spontaneous
  Country: US (occurrence: US)
  Receive Date: 20220502
  Receipt Date: 20220502
  Transmission Date: 20220721
  Serious: No
  Sender: FDA-Public Use
  Company Number: US-PFIZER INC-2020057201

PATIENT
  Age: 64 Year
  Sex: Female
  Weight: 76.2 kg

DRUGS (2)
  1. LYRICA [Suspect]
     Active Substance: PREGABALIN
     Indication: Intracranial aneurysm
     Dosage: 75 MG, AS NEEDED (TAKE 1 CAPSULE(S) 3 TIMES A DAY BY ORAL ROUTE AS NEEDED FOR 90 DAYS)
     Route: 048
  2. LYRICA [Suspect]
     Active Substance: PREGABALIN
     Indication: Sciatica
     Dosage: 75 MG, 3X/DAY (75 MG THREE TIMES DAILY BY MOUTH)
     Route: 048

REACTIONS (1)
  - Memory impairment [Unknown]
